FAERS Safety Report 14154407 (Version 1)
Quarter: 2017Q4

REPORT INFORMATION
  Report Type: Spontaneous
  Country: US (occurrence: US)
  Receive Date: 20171102
  Receipt Date: 20171102
  Transmission Date: 20180321
  Serious: No
  Sender: FDA-Public Use
  Company Number: US-PERRIGO-17US026263

PATIENT
  Age: 64 Year
  Sex: Female
  Weight: 70.75 kg

DRUGS (1)
  1. ENTOCORT EC [Suspect]
     Active Substance: BUDESONIDE
     Indication: COLITIS MICROSCOPIC
     Dosage: 3 MG, TID
     Route: 048
     Dates: start: 20170823, end: 20170824

REACTIONS (2)
  - Off label use [Recovered/Resolved]
  - Expired product administered [Recovered/Resolved]

NARRATIVE: CASE EVENT DATE: 20170823
